FAERS Safety Report 5109415-X (Version None)
Quarter: 2006Q3

REPORT INFORMATION
  Report Type: 
  Country: None (occurrence: None)
  Receive Date: 20060918
  Receipt Date: 20060906
  Transmission Date: 20061208
  Serious: Yes (Other)
  Sender: FDA-Public Use
  Company Number: 06-000814

PATIENT
  Age: 30 Year
  Sex: Female
  Weight: 72.6 kg

DRUGS (1)
  1. LOESTRIN 24 FE [Suspect]
     Indication: CONTRACEPTION
     Dosage: 20/1000 MCG, QD, ORAL
     Route: 048
     Dates: start: 20060709, end: 20060805

REACTIONS (6)
  - ABDOMINAL PAIN [None]
  - AMENORRHOEA [None]
  - BREAST PAIN [None]
  - INAPPROPRIATE SCHEDULE OF DRUG ADMINISTRATION [None]
  - METRORRHAGIA [None]
  - OVARIAN CYST RUPTURED [None]
